FAERS Safety Report 11044341 (Version 3)
Quarter: 2015Q2

REPORT INFORMATION
  Report Type: Spontaneous
  Country: US (occurrence: US)
  Receive Date: 20150417
  Receipt Date: 20150612
  Transmission Date: 20150821
  Serious: Yes (Death)
  Sender: FDA-Public Use
  Company Number: US-UCBSA-2015011863

PATIENT
  Age: 3 Month
  Sex: Female

DRUGS (3)
  1. SUBOXONE [Concomitant]
     Active Substance: BUPRENORPHINE HYDROCHLORIDE\NALOXONE HYDROCHLORIDE
     Indication: PRODUCT USED FOR UNKNOWN INDICATION
     Route: 064
  2. KEPPRA [Suspect]
     Active Substance: LEVETIRACETAM
     Indication: SEIZURE
     Dosage: 1500 MG A DAY (FREQUENCY UNSPECIFIED)
     Route: 064
     Dates: end: 201409
  3. KEPPRA XR [Suspect]
     Active Substance: LEVETIRACETAM
     Indication: SEIZURE
     Dosage: UNK, START DATE-10 YEARS
     Route: 064

REACTIONS (2)
  - Foetal exposure during pregnancy [Unknown]
  - Death [Fatal]

NARRATIVE: CASE EVENT DATE: 20150108
